FAERS Safety Report 16845819 (Version 1)
Quarter: 2019Q3

REPORT INFORMATION
  Report Type: Spontaneous
  Country: US (occurrence: US)
  Receive Date: 20190924
  Receipt Date: 20190924
  Transmission Date: 20191005
  Serious: No
  Sender: FDA-Public Use
  Company Number: US-CATALYST PHARMACEUTICALS, INC-2019CAT00247

PATIENT
  Sex: Female
  Weight: 87.53 kg

DRUGS (3)
  1. FIRDAPSE [Suspect]
     Active Substance: AMIFAMPRIDINE
     Indication: MYASTHENIC SYNDROME
     Dosage: 15 MG, 2X/DAY (7:00 AM AND 12:00 PM)
     Route: 048
     Dates: start: 201903
  2. FIRDAPSE [Suspect]
     Active Substance: AMIFAMPRIDINE
     Dosage: 10 MG, 1X/DAY (6:00 PM)
     Route: 048
     Dates: start: 201903
  3. KEPPRA [Concomitant]
     Active Substance: LEVETIRACETAM
     Indication: SEIZURE

REACTIONS (2)
  - Abdominal pain [Recovered/Resolved]
  - Night sweats [Unknown]

NARRATIVE: CASE EVENT DATE: 2019
